FAERS Safety Report 15473221 (Version 1)
Quarter: 2018Q4

REPORT INFORMATION
  Report Type: Report from Study
  Country: IT (occurrence: IT)
  Receive Date: 20181008
  Receipt Date: 20181008
  Transmission Date: 20190205
  Serious: Yes (Death)
  Sender: FDA-Public Use
  Company Number: IT-CELGENEUS-ITA-20180909571

PATIENT
  Age: 77 Year

DRUGS (2)
  1. IMNOVID [Suspect]
     Active Substance: POMALIDOMIDE
     Indication: PRODUCT USED FOR UNKNOWN INDICATION
     Route: 048
  2. IMNOVID [Suspect]
     Active Substance: POMALIDOMIDE
     Route: 048

REACTIONS (1)
  - Death [Fatal]
